FAERS Safety Report 4509500-7 (Version None)
Quarter: 2004Q4

REPORT INFORMATION
  Report Type: 
  Country: None (occurrence: None)
  Receive Date: 20041119
  Receipt Date: 20041103
  Transmission Date: 20050328
  Serious: Yes (Other)
  Sender: FDA-Public Use
  Company Number: USA040875850

PATIENT
  Age: 12 Year
  Sex: Female
  Weight: 45 kg

DRUGS (1)
  1. STRATTERA [Suspect]
     Indication: ATTENTION DEFICIT/HYPERACTIVITY DISORDER
     Dosage: 60 MG DAY
     Dates: start: 20040601, end: 20040801

REACTIONS (9)
  - BLOOD ALKALINE PHOSPHATASE INCREASED [None]
  - COMPLEX PARTIAL SEIZURES [None]
  - CONFUSIONAL STATE [None]
  - EOSINOPHIL PERCENTAGE INCREASED [None]
  - GRAND MAL CONVULSION [None]
  - HEART RATE INCREASED [None]
  - LOSS OF CONSCIOUSNESS [None]
  - POSTICTAL STATE [None]
  - RESPIRATORY RATE INCREASED [None]
